FAERS Safety Report 4294265-7 (Version None)
Quarter: 2004Q1

REPORT INFORMATION
  Report Type: 
  Country: None (occurrence: None)
  Receive Date: 20040211
  Receipt Date: 20030728
  Transmission Date: 20041129
  Serious: No
  Sender: FDA-Public Use
  Company Number: US-GLAXOSMITHKLINE-A0419186A

PATIENT
  Age: 55 Year
  Sex: Female

DRUGS (7)
  1. LAMICTAL [Suspect]
     Indication: BIPOLAR DISORDER
     Dosage: 25MG PER DAY
     Route: 048
     Dates: start: 20030725
  2. PREMARIN [Concomitant]
  3. LEVOXYL [Concomitant]
  4. TRILEPTAL [Concomitant]
  5. LORAZEPAM [Concomitant]
  6. HALDOL [Concomitant]
  7. LITHOBID [Concomitant]
     Dates: end: 20030727

REACTIONS (4)
  - ANXIETY [None]
  - HEADACHE [None]
  - PARANOIA [None]
  - STRESS SYMPTOMS [None]
